FAERS Safety Report 21510158 (Version 1)
Quarter: 2022Q4

REPORT INFORMATION
  Report Type: Spontaneous
  Country: US (occurrence: US)
  Receive Date: 20221026
  Receipt Date: 20221026
  Transmission Date: 20230112
  Serious: No
  Sender: FDA-Public Use
  Company Number: US-JAZZ-2022-US-033018

PATIENT
  Sex: Female

DRUGS (7)
  1. SUNOSI [Suspect]
     Active Substance: SOLRIAMFETOL
     Indication: Obstructive sleep apnoea syndrome
     Dosage: UNK
  2. XYWAV [Suspect]
     Active Substance: CALCIUM OXYBATE\MAGNESIUM OXYBATE\POTASSIUM OXYBATE\SODIUM OXYBATE
     Indication: Obstructive sleep apnoea syndrome
     Dosage: 4.5 GRAM, BID
  3. PROVIGIL [Suspect]
     Active Substance: MODAFINIL
     Indication: Obstructive sleep apnoea syndrome
  4. NUVIGIL [Suspect]
     Active Substance: ARMODAFINIL
     Indication: Obstructive sleep apnoea syndrome
  5. ADDERALL [Suspect]
     Active Substance: AMPHETAMINE ASPARTATE\AMPHETAMINE SULFATE\DEXTROAMPHETAMINE SACCHARATE\DEXTROAMPHETAMINE SULFATE
     Indication: Obstructive sleep apnoea syndrome
  6. WAKIX [Suspect]
     Active Substance: PITOLISANT HYDROCHLORIDE
  7. LIPITOR [Concomitant]
     Active Substance: ATORVASTATIN CALCIUM
     Indication: Product used for unknown indication
     Dosage: UNK

REACTIONS (1)
  - Drug ineffective [Unknown]
